FAERS Safety Report 9957011 (Version 1)
Quarter: 2014Q1

REPORT INFORMATION
  Report Type: Report from Study
  Country: US (occurrence: US)
  Receive Date: 20140304
  Receipt Date: 20140304
  Transmission Date: 20141002
  Serious: No
  Sender: FDA-Public Use
  Company Number: US-ABBVIE-13P-163-1096476-00

PATIENT
  Age: 55 Year
  Sex: Male

DRUGS (4)
  1. HUMIRA [Suspect]
     Indication: PSORIATIC ARTHROPATHY
     Dates: start: 20121129
  2. LISINOPRIL [Concomitant]
     Indication: HYPERTENSION
     Dosage: DAILY
  3. NAPROXEN [Concomitant]
     Indication: ARTHRALGIA
     Dosage: DAILY AS NEEDED
  4. SUDAFED [Concomitant]
     Indication: SINUS DISORDER

REACTIONS (1)
  - Cellulitis [Not Recovered/Not Resolved]
